FAERS Safety Report 10290623 (Version 1)
Quarter: 2014Q3

REPORT INFORMATION
  Report Type: Spontaneous
  Country: US (occurrence: None)
  Receive Date: 20140707
  Receipt Date: 20140707
  Transmission Date: 20150326
  Serious: Yes (Disabling, Other)
  Sender: FDA-Public Use
  Company Number: None

PATIENT
  Age: 39 Year
  Sex: Female
  Weight: 48.99 kg

DRUGS (1)
  1. LEVOFLOXACIN 500MG ZYDUS PHARMACEUTICALS [Suspect]
     Active Substance: LEVOFLOXACIN
     Indication: PHARYNGITIS
     Dosage: 14 ONCE DAILY
     Route: 048
     Dates: start: 20140630, end: 20140630

REACTIONS (10)
  - Chest pain [None]
  - Tremor [None]
  - Muscle spasms [None]
  - Fatigue [None]
  - Paraesthesia [None]
  - Back pain [None]
  - Arthralgia [None]
  - Tendon pain [None]
  - Muscular weakness [None]
  - Urine analysis abnormal [None]

NARRATIVE: CASE EVENT DATE: 20140630
